FAERS Safety Report 9499788 (Version 2)
Quarter: 2013Q3

REPORT INFORMATION
  Report Type: Spontaneous
  Country: US (occurrence: US)
  Receive Date: 20130905
  Receipt Date: 20130911
  Transmission Date: 20140515
  Serious: No
  Sender: FDA-Public Use
  Company Number: US-JNJFOC-20130900734

PATIENT
  Sex: Female
  Weight: 83.92 kg

DRUGS (2)
  1. DURAGESIC [Suspect]
     Indication: PAIN
     Dosage: 100 UG/HR + 100 UG/HR + 50 UG/HR
     Route: 062
     Dates: start: 2012
  2. FENTORA [Concomitant]
     Indication: PAIN
     Route: 048

REACTIONS (6)
  - Malaise [Recovered/Resolved]
  - Condition aggravated [Recovered/Resolved]
  - Wrong technique in drug usage process [Not Recovered/Not Resolved]
  - Product packaging issue [Unknown]
  - Poor quality drug administered [Unknown]
  - Product quality issue [Unknown]
